FAERS Safety Report 12359176 (Version 1)
Quarter: 2016Q2

REPORT INFORMATION
  Report Type: Report from Study
  Country: BR (occurrence: BR)
  Receive Date: 20160512
  Receipt Date: 20160512
  Transmission Date: 20160815
  Serious: Yes (Other)
  Sender: FDA-Public Use
  Company Number: PHHY2016BR063973

PATIENT
  Sex: Male
  Weight: 90 kg

DRUGS (3)
  1. DIURIX [Suspect]
     Active Substance: FUROSEMIDE
     Indication: DIURETIC THERAPY
     Dosage: 0.5 DF, QD
     Route: 048
  2. RASILEZ [Suspect]
     Active Substance: ALISKIREN
     Indication: BLOOD PRESSURE ABNORMAL
     Dosage: 300 MG, QD
     Route: 048
  3. RASILEZ HCT [Suspect]
     Active Substance: ALISKIREN\HYDROCHLOROTHIAZIDE
     Indication: BLOOD PRESSURE ABNORMAL
     Dosage: 1 DF (ALISKIREN 300 MG, HYDROCHLOROTHIAZIDE 12.5 MG), QD
     Route: 048

REACTIONS (1)
  - Diabetes mellitus [Unknown]
